FAERS Safety Report 21657424 (Version 3)
Quarter: 2022Q4

REPORT INFORMATION
  Report Type: Report from Study
  Country: MX (occurrence: MX)
  Receive Date: 20221129
  Receipt Date: 20221215
  Transmission Date: 20230113
  Serious: Yes (Hospitalization, Other)
  Sender: FDA-Public Use
  Company Number: MX-002147023-NVSC2022MX116203

PATIENT
  Age: 44 Year
  Sex: Female
  Weight: 80 kg

DRUGS (3)
  1. TASIGNA [Suspect]
     Active Substance: NILOTINIB
     Indication: Chronic myeloid leukaemia
     Dosage: UNK
     Route: 048
  2. TASIGNA [Suspect]
     Active Substance: NILOTINIB
     Dosage: 600 DAILY (400 MG AT 6 AM AND 200 AT 9 PM)
     Route: 048
     Dates: start: 2017
  3. TASIGNA [Suspect]
     Active Substance: NILOTINIB
     Dosage: UNK
     Route: 048
     Dates: start: 2018

REACTIONS (44)
  - Intervertebral disc protrusion [Unknown]
  - Syncope [Unknown]
  - Pain [Unknown]
  - Haemoglobin abnormal [Recovering/Resolving]
  - Emotional disorder [Unknown]
  - Skin injury [Recovering/Resolving]
  - Dysmenorrhoea [Recovering/Resolving]
  - Deformity [Unknown]
  - Sinusitis [Unknown]
  - Skin irritation [Recovering/Resolving]
  - Dyspnoea [Unknown]
  - Chest pain [Unknown]
  - Abdominal pain upper [Recovering/Resolving]
  - Pain of skin [Recovering/Resolving]
  - Alopecia [Recovering/Resolving]
  - Gastritis [Recovering/Resolving]
  - Acne [Recovering/Resolving]
  - Weight decreased [Recovering/Resolving]
  - Anxiety [Recovering/Resolving]
  - Fatigue [Recovering/Resolving]
  - Facial pain [Unknown]
  - Oropharyngeal discomfort [Not Recovered/Not Resolved]
  - Road traffic accident [Unknown]
  - Haemoglobin decreased [Not Recovered/Not Resolved]
  - Appetite disorder [Unknown]
  - Stress [Unknown]
  - Haemoglobin increased [Unknown]
  - Illness [Unknown]
  - Tendonitis [Unknown]
  - Burning sensation [Unknown]
  - Spinal pain [Unknown]
  - Visual impairment [Unknown]
  - Abdominal distension [Recovering/Resolving]
  - Abdominal pain [Unknown]
  - Abdominal discomfort [Unknown]
  - Pain in extremity [Unknown]
  - Arthralgia [Unknown]
  - Neck pain [Unknown]
  - Back pain [Unknown]
  - Body temperature abnormal [Unknown]
  - Oropharyngeal pain [Unknown]
  - Reflux gastritis [Unknown]
  - Anaemia [Unknown]
  - Drug intolerance [Unknown]

NARRATIVE: CASE EVENT DATE: 20221205
